FAERS Safety Report 19901086 (Version 2)
Quarter: 2021Q4

REPORT INFORMATION
  Report Type: Spontaneous
  Country: US (occurrence: US)
  Receive Date: 20210929
  Receipt Date: 20211004
  Transmission Date: 20220304
  Serious: Yes (Hospitalization, Other)
  Sender: FDA-Public Use
  Company Number: US-TEVA-2021-US-1958328

PATIENT
  Age: 56 Year
  Sex: Male

DRUGS (2)
  1. COLCHICINE [Suspect]
     Active Substance: COLCHICINE
     Indication: Pain
     Route: 065
  2. PREDNISONE [Suspect]
     Active Substance: PREDNISONE
     Indication: Polyarthritis
     Dosage: TAPERING DOSE
     Route: 065

REACTIONS (6)
  - Gonococcal infection [Recovering/Resolving]
  - Hydrocephalus [Recovering/Resolving]
  - Meningitis gonococcal [Recovering/Resolving]
  - Encephalopathy [Recovering/Resolving]
  - Hyponatraemia [Recovered/Resolved]
  - Drug ineffective [Unknown]
